FAERS Safety Report 7239775-5 (Version None)
Quarter: 2011Q1

REPORT INFORMATION
  Report Type: 
  Country: None (occurrence: None)
  Receive Date: 20110122
  Receipt Date: 20101110
  Transmission Date: 20110831
  Serious: No
  Sender: FDA-Public Use
  Company Number: US-ALLERGAN-1014571US

PATIENT
  Age: 63 Year
  Sex: Female

DRUGS (4)
  1. LATISSE [Suspect]
     Indication: GROWTH OF EYELASHES
     Dosage: UNK
     Route: 061
     Dates: start: 20101013
  2. PREVAGE [Concomitant]
  3. DERMAL FILLERS UNSPECIFIED [Concomitant]
  4. BOTOX COSMETIC [Concomitant]
     Dosage: UNK

REACTIONS (3)
  - EYELID OEDEMA [None]
  - EYE IRRITATION [None]
  - APPLICATION SITE PAIN [None]
